FAERS Safety Report 5126511-1 (Version None)
Quarter: 2006Q4

REPORT INFORMATION
  Report Type: 
  Country: None (occurrence: None)
  Receive Date: 20061010
  Receipt Date: 20060927
  Transmission Date: 20070319
  Serious: Yes (Other)
  Sender: FDA-Public Use
  Company Number: 2006118017

PATIENT
  Age: 58 Year
  Sex: Female
  Weight: 74.8435 kg

DRUGS (4)
  1. GENOTROPIN [Suspect]
     Indication: HYPOPITUITARISM
     Dosage: 0.2 MG (0.2 MG, 1 IN 1 D), SUBCUTANEOUS
     Route: 058
     Dates: start: 20060801
  2. THYROID TAB [Concomitant]
  3. ESTROGENIC SUBSTANCE [Concomitant]
  4. TEMAZEPAM [Concomitant]

REACTIONS (16)
  - BACK PAIN [None]
  - BURNING SENSATION [None]
  - CHEST PAIN [None]
  - DEPRESSION [None]
  - FEELING ABNORMAL [None]
  - GLOSSODYNIA [None]
  - HEADACHE [None]
  - LUNG DISORDER [None]
  - MENTAL IMPAIRMENT [None]
  - OEDEMA PERIPHERAL [None]
  - PAIN [None]
  - PALPITATIONS [None]
  - SLEEP DISORDER [None]
  - SUICIDAL IDEATION [None]
  - VISION BLURRED [None]
  - WHEEZING [None]
